FAERS Safety Report 22842755 (Version 2)
Quarter: 2023Q4

REPORT INFORMATION
  Report Type: Report from Study
  Country: US (occurrence: US)
  Receive Date: 20230821
  Receipt Date: 20231025
  Transmission Date: 20240110
  Serious: Yes (Other)
  Sender: FDA-Public Use
  Company Number: US-ABBVIE-5371934

PATIENT
  Age: 87 Year
  Sex: Male
  Weight: 78 kg

DRUGS (1)
  1. IMBRUVICA [Suspect]
     Active Substance: IBRUTINIB
     Indication: Chronic lymphocytic leukaemia
     Route: 048
     Dates: start: 202110

REACTIONS (8)
  - Loss of consciousness [Unknown]
  - Urinary incontinence [Unknown]
  - Fluid retention [Unknown]
  - Memory impairment [Unknown]
  - Syncope [Unknown]
  - Blood pressure fluctuation [Unknown]
  - Vein disorder [Unknown]
  - Fall [Unknown]

NARRATIVE: CASE EVENT DATE: 20230807
